FAERS Safety Report 11232367 (Version 3)
Quarter: 2015Q4

REPORT INFORMATION
  Report Type: Spontaneous
  Country: DE (occurrence: DE)
  Receive Date: 20150701
  Receipt Date: 20151119
  Transmission Date: 20160304
  Serious: Yes (Hospitalization, Disabling)
  Sender: FDA-Public Use
  Company Number: GXKR2015DE003088

PATIENT
  Age: 90 Year
  Sex: Female
  Weight: 54 kg

DRUGS (5)
  1. VALPROAT HEXAL [Suspect]
     Active Substance: DIVALPROEX SODIUM
     Indication: PAIN
     Route: 048
  2. VALPROATE SODIUM. [Suspect]
     Active Substance: VALPROATE SODIUM
     Dosage: 750 MG, TID
     Route: 048
  3. VALPROATE SODIUM. [Suspect]
     Active Substance: VALPROATE SODIUM
     Indication: PAIN
     Dosage: 75 MG, TID
     Route: 048
  4. VALPROATE SODIUM. [Suspect]
     Active Substance: VALPROATE SODIUM
     Dosage: 150 MG, TID
     Route: 048
  5. VALPROATE SODIUM. [Suspect]
     Active Substance: VALPROATE SODIUM
     Dosage: 475 MG, TID
     Route: 048

REACTIONS (9)
  - Confusional state [Not Recovered/Not Resolved]
  - Incorrect dose administered [Recovered/Resolved]
  - Aphasia [Not Recovered/Not Resolved]
  - Dehydration [Not Recovered/Not Resolved]
  - Anxiety [Not Recovered/Not Resolved]
  - Asthenia [Not Recovered/Not Resolved]
  - Overdose [Recovered/Resolved]
  - Drug level decreased [Unknown]
  - Malabsorption [Not Recovered/Not Resolved]
